FAERS Safety Report 22084270 (Version 1)
Quarter: 2023Q1

REPORT INFORMATION
  Report Type: Spontaneous
  Country: US (occurrence: US)
  Receive Date: 20230310
  Receipt Date: 20230310
  Transmission Date: 20230418
  Serious: No
  Sender: FDA-Public Use
  Company Number: US-HORIZON THERAPEUTICS-HZN-2022-001637

PATIENT

DRUGS (2)
  1. PENNSAID [Suspect]
     Active Substance: DICLOFENAC SODIUM
     Indication: Myalgia
     Dosage: 1ST DOSE, ONCE A DAY
     Route: 065
     Dates: start: 20210224
  2. PENNSAID [Suspect]
     Active Substance: DICLOFENAC SODIUM
     Dosage: LAST DOSE
     Route: 065
     Dates: start: 20210227

REACTIONS (5)
  - Rash papular [Unknown]
  - Skin irritation [Unknown]
  - Pruritus [Unknown]
  - Dry skin [Unknown]
  - Off label use [Unknown]
